FAERS Safety Report 12944602 (Version 2)
Quarter: 2017Q1

REPORT INFORMATION
  Report Type: Report from Study
  Country: US (occurrence: US)
  Receive Date: 20161115
  Receipt Date: 20170104
  Transmission Date: 20170428
  Serious: Yes (Other)
  Sender: FDA-Public Use
  Company Number: US-009507513-1611USA006006

PATIENT
  Age: 5 Decade
  Sex: Male

DRUGS (2)
  1. MEVACOR [Suspect]
     Active Substance: LOVASTATIN
     Indication: TYPE IIA HYPERLIPIDAEMIA
  2. LITHIUM. [Concomitant]
     Active Substance: LITHIUM
     Indication: BIPOLAR DISORDER

REACTIONS (3)
  - Mania [Unknown]
  - Suicide attempt [Unknown]
  - Depression [Unknown]
